FAERS Safety Report 15723127 (Version 1)
Quarter: 2018Q4

REPORT INFORMATION
  Report Type: Spontaneous
  Country: US (occurrence: US)
  Receive Date: 20181214
  Receipt Date: 20181214
  Transmission Date: 20190205
  Serious: Yes (Other)
  Sender: FDA-Public Use
  Company Number: US-TEVA-2018-US-986749

PATIENT
  Age: 78 Year
  Sex: Female

DRUGS (1)
  1. VALSARTAN. [Suspect]
     Active Substance: VALSARTAN
     Indication: HYPERTENSION
     Dosage: TOOK THE PRODUCT FOR MANY YEARS?DOSE STRENGTH:  160 UNKNOWN UNITS
     Route: 065
     Dates: end: 2017

REACTIONS (3)
  - Recalled product administered [Unknown]
  - Chronic kidney disease [Unknown]
  - Urinary incontinence [Unknown]
